FAERS Safety Report 17119594 (Version 4)
Quarter: 2020Q3

REPORT INFORMATION
  Report Type: Spontaneous
  Country: US (occurrence: US)
  Receive Date: 20191206
  Receipt Date: 20200813
  Transmission Date: 20201102
  Serious: No
  Sender: FDA-Public Use
  Company Number: US-HTU-2019US019712

PATIENT
  Sex: Female

DRUGS (9)
  1. LAMOTRIGINE. [Concomitant]
     Active Substance: LAMOTRIGINE
  2. TRETINOIN. [Concomitant]
     Active Substance: TRETINOIN
  3. CLOBETASOL [Concomitant]
     Active Substance: CLOBETASOL
  4. FLUOXETINE [Concomitant]
     Active Substance: FLUOXETINE HYDROCHLORIDE
  5. DOXYCYCLINE HYCLATE. [Concomitant]
     Active Substance: DOXYCYCLINE HYCLATE
  6. VALCHLOR [Suspect]
     Active Substance: MECHLORETHAMINE
     Indication: CUTANEOUS T-CELL LYMPHOMA
     Dosage: THIN FILM TWICE A DAY, MONDAY TO FRIDAY
     Route: 061
     Dates: start: 201909
  7. VALCHLOR [Suspect]
     Active Substance: MECHLORETHAMINE
     Dosage: THIN FILM, WEEKDAYS, MONDAY THROUGH FRIDAY ONCE DAILY
     Route: 061
  8. PRAZOSIN. [Concomitant]
     Active Substance: PRAZOSIN
  9. BENZOYL PEROXIDE. [Concomitant]
     Active Substance: BENZOYL PEROXIDE

REACTIONS (8)
  - Off label use [Unknown]
  - Skin exfoliation [Not Recovered/Not Resolved]
  - Intentional dose omission [Recovered/Resolved]
  - Product administration error [Recovered/Resolved]
  - Skin discolouration [Unknown]
  - Onychoclasis [Not Recovered/Not Resolved]
  - Application site discolouration [Recovering/Resolving]
  - Alopecia [Not Recovered/Not Resolved]
